FAERS Safety Report 25435592 (Version 1)
Quarter: 2025Q2

REPORT INFORMATION
  Report Type: Spontaneous
  Country: DE (occurrence: DE)
  Receive Date: 20250613
  Receipt Date: 20250613
  Transmission Date: 20250716
  Serious: Yes (Hospitalization, Other)
  Sender: MYLAN
  Company Number: None

PATIENT
  Age: 24 Year
  Sex: Male
  Weight: 71.2 kg

DRUGS (32)
  1. POSACONAZOLE [Interacting]
     Active Substance: POSACONAZOLE
     Indication: Antifungal prophylaxis
  2. POSACONAZOLE [Interacting]
     Active Substance: POSACONAZOLE
     Route: 065
  3. POSACONAZOLE [Interacting]
     Active Substance: POSACONAZOLE
     Route: 065
  4. POSACONAZOLE [Interacting]
     Active Substance: POSACONAZOLE
  5. DAUNORUBICIN [Suspect]
     Active Substance: DAUNORUBICIN
     Indication: Acute myeloid leukaemia
     Dosage: 119 MILLIGRAM, QD
     Dates: start: 20210917, end: 20210919
  6. DAUNORUBICIN [Suspect]
     Active Substance: DAUNORUBICIN
     Dosage: 119 MILLIGRAM, QD
     Route: 042
     Dates: start: 20210917, end: 20210919
  7. DAUNORUBICIN [Suspect]
     Active Substance: DAUNORUBICIN
     Dosage: 119 MILLIGRAM, QD
     Route: 042
     Dates: start: 20210917, end: 20210919
  8. DAUNORUBICIN [Suspect]
     Active Substance: DAUNORUBICIN
     Dosage: 119 MILLIGRAM, QD
     Dates: start: 20210917, end: 20210919
  9. DAUNORUBICIN [Suspect]
     Active Substance: DAUNORUBICIN
     Indication: Acute myeloid leukaemia
  10. DAUNORUBICIN [Suspect]
     Active Substance: DAUNORUBICIN
     Route: 065
  11. DAUNORUBICIN [Suspect]
     Active Substance: DAUNORUBICIN
     Route: 065
  12. DAUNORUBICIN [Suspect]
     Active Substance: DAUNORUBICIN
  13. MIDOSTAURIN [Interacting]
     Active Substance: MIDOSTAURIN
     Indication: Acute myeloid leukaemia
     Dosage: 50 MILLIGRAM, QD (INITIATED ON DAY 8)
     Dates: start: 20210917, end: 20210929
  14. MIDOSTAURIN [Interacting]
     Active Substance: MIDOSTAURIN
     Dosage: 50 MILLIGRAM, QD (INITIATED ON DAY 8)
     Route: 048
     Dates: start: 20210917, end: 20210929
  15. MIDOSTAURIN [Interacting]
     Active Substance: MIDOSTAURIN
     Dosage: 50 MILLIGRAM, QD (INITIATED ON DAY 8)
     Route: 048
     Dates: start: 20210917, end: 20210929
  16. MIDOSTAURIN [Interacting]
     Active Substance: MIDOSTAURIN
     Dosage: 50 MILLIGRAM, QD (INITIATED ON DAY 8)
     Dates: start: 20210917, end: 20210929
  17. CYTARABINE [Suspect]
     Active Substance: CYTARABINE
     Indication: Acute myeloid leukaemia
     Dosage: 396 MG, QD (CONTINUOUSLY)
     Dates: start: 20210917, end: 20210921
  18. CYTARABINE [Suspect]
     Active Substance: CYTARABINE
     Dosage: 396 MG, QD (CONTINUOUSLY)
     Dates: start: 20210917, end: 20210921
  19. CYTARABINE [Suspect]
     Active Substance: CYTARABINE
     Dosage: 396 MG, QD (CONTINUOUSLY)
     Route: 042
     Dates: start: 20210917, end: 20210921
  20. CYTARABINE [Suspect]
     Active Substance: CYTARABINE
     Dosage: 396 MG, QD (CONTINUOUSLY)
     Route: 042
     Dates: start: 20210917, end: 20210921
  21. CYTARABINE [Suspect]
     Active Substance: CYTARABINE
  22. CYTARABINE [Suspect]
     Active Substance: CYTARABINE
  23. CYTARABINE [Suspect]
     Active Substance: CYTARABINE
     Route: 065
  24. CYTARABINE [Suspect]
     Active Substance: CYTARABINE
     Route: 065
  25. CYTARABINE [Suspect]
     Active Substance: CYTARABINE
  26. CYTARABINE [Suspect]
     Active Substance: CYTARABINE
     Route: 065
  27. CYTARABINE [Suspect]
     Active Substance: CYTARABINE
  28. CYTARABINE [Suspect]
     Active Substance: CYTARABINE
     Route: 065
  29. POSACONAZOLE [Concomitant]
     Active Substance: POSACONAZOLE
     Indication: Antifungal prophylaxis
     Dosage: 300 MILLIGRAM, QD (STOP UNKNOWN, PROBABLY AFTER ALLOGENEIC STEM CELL TRANSPLANT)
     Dates: start: 20210916
  30. POSACONAZOLE [Concomitant]
     Active Substance: POSACONAZOLE
     Dosage: 300 MILLIGRAM, QD (STOP UNKNOWN, PROBABLY AFTER ALLOGENEIC STEM CELL TRANSPLANT)
     Route: 048
     Dates: start: 20210916
  31. POSACONAZOLE [Concomitant]
     Active Substance: POSACONAZOLE
     Dosage: 300 MILLIGRAM, QD (STOP UNKNOWN, PROBABLY AFTER ALLOGENEIC STEM CELL TRANSPLANT)
     Route: 048
     Dates: start: 20210916
  32. POSACONAZOLE [Concomitant]
     Active Substance: POSACONAZOLE
     Dosage: 300 MILLIGRAM, QD (STOP UNKNOWN, PROBABLY AFTER ALLOGENEIC STEM CELL TRANSPLANT)
     Dates: start: 20210916

REACTIONS (5)
  - Myopericarditis [Recovered/Resolved]
  - Myocarditis [Recovered/Resolved]
  - Chest pain [Recovered/Resolved]
  - Febrile neutropenia [Recovered/Resolved]
  - Drug interaction [Unknown]

NARRATIVE: CASE EVENT DATE: 20210929
